FAERS Safety Report 5080434-5 (Version None)
Quarter: 2006Q3

REPORT INFORMATION
  Report Type: 
  Country: None (occurrence: None)
  Receive Date: 20060815
  Receipt Date: 20060711
  Transmission Date: 20061208
  Serious: Yes (Death)
  Sender: FDA-Public Use
  Company Number: JP-SANOFI-SYNTHELABO-A01200605590

PATIENT
  Sex: Male
  Weight: 72 kg

DRUGS (5)
  1. LEUCOVORIN CALCIUM [Concomitant]
     Indication: LARGE INTESTINE CARCINOMA
     Dosage: 175MG/BODY=99.4MG/M2
     Route: 041
     Dates: start: 20060516, end: 20060517
  2. FLUOROURACIL [Suspect]
     Indication: LARGE INTESTINE CARCINOMA
     Dosage: 700MG/BODY=397.7MG/M2 IN BOLUS THEN 1000MG/BODY=568.2MG/M2
     Route: 041
     Dates: start: 20060516, end: 20060517
  3. OXALIPLATIN [Suspect]
     Indication: LARGE INTESTINE CARCINOMA
     Dosage: 150MG/BODY=85.2MG/M2
     Route: 041
     Dates: start: 20060516, end: 20060516
  4. KYTRIL [Concomitant]
     Dosage: 1 AMPULE
     Route: 042
     Dates: start: 20060516, end: 20060613
  5. DECADRON [Concomitant]
     Dosage: 4 VIALS
     Route: 042
     Dates: start: 20060516, end: 20060614

REACTIONS (7)
  - ANOREXIA [None]
  - HAEMOGLOBIN DECREASED [None]
  - LEUKOPENIA [None]
  - NEUTROPENIA [None]
  - PNEUMONIA [None]
  - PULMONARY OEDEMA [None]
  - THROMBOCYTOPENIA [None]
